FAERS Safety Report 24671882 (Version 1)
Quarter: 2024Q4

REPORT INFORMATION
  Report Type: Spontaneous
  Country: GB (occurrence: GB)
  Receive Date: 20241127
  Receipt Date: 20241127
  Transmission Date: 20250114
  Serious: Yes (Other)
  Sender: ELI LILLY AND COMPANY
  Company Number: GB-MHRA-WEBRADR-202411191104043330-VLZND

PATIENT
  Age: 43 Year
  Sex: Female
  Weight: 78 kg

DRUGS (4)
  1. MOUNJARO [Suspect]
     Active Substance: TIRZEPATIDE
     Indication: Weight control
     Dosage: UNK UNK, UNKNOWN
     Route: 058
  2. MOUNJARO [Suspect]
     Active Substance: TIRZEPATIDE
     Indication: Weight control
     Dosage: 7.5 MG, UNKNOWN
     Route: 058
  3. MOUNJARO [Suspect]
     Active Substance: TIRZEPATIDE
     Indication: Weight control
     Dosage: 10 MG, UNKNOWN
     Route: 058
  4. MOUNJARO [Suspect]
     Active Substance: TIRZEPATIDE
     Indication: Weight control
     Dosage: 12.5 MG, UNKNOWN
     Route: 058
     Dates: start: 20240803

REACTIONS (5)
  - Muscle fatigue [Not Recovered/Not Resolved]
  - Allodynia [Not Recovered/Not Resolved]
  - Sensitive skin [Unknown]
  - Injection site urticaria [Not Recovered/Not Resolved]
  - Fatigue [Unknown]

NARRATIVE: CASE EVENT DATE: 20240803
